FAERS Safety Report 13787446 (Version 2)
Quarter: 2018Q1

REPORT INFORMATION
  Report Type: Spontaneous
  Country: US (occurrence: US)
  Receive Date: 20170725
  Receipt Date: 20180315
  Transmission Date: 20180508
  Serious: No
  Sender: FDA-Public Use
  Company Number: US-JNJFOC-20170703736

PATIENT
  Age: 91 Year
  Sex: Female
  Weight: 63.5 kg

DRUGS (1)
  1. TYLENOL EXTRA STRENGTH [Suspect]
     Active Substance: ACETAMINOPHEN
     Indication: NEURALGIA
     Dosage: AT BEDTIME
     Route: 048

REACTIONS (4)
  - Off label use [Unknown]
  - Product packaging issue [Unknown]
  - Product use in unapproved indication [Unknown]
  - Product storage error [Unknown]
